FAERS Safety Report 24360498 (Version 5)
Quarter: 2025Q1

REPORT INFORMATION
  Report Type: Report from Study
  Country: US (occurrence: US)
  Receive Date: 20240925
  Receipt Date: 20250204
  Transmission Date: 20250408
  Serious: Yes (Hospitalization)
  Sender: ROCHE
  Company Number: US-ROCHE-10000085436

PATIENT
  Age: 49 Year
  Sex: Female
  Weight: 95.25 kg

DRUGS (4)
  1. XOLAIR PFS [Suspect]
     Active Substance: OMALIZUMAB
     Indication: Asthma
     Route: 058
     Dates: start: 202312, end: 202404
  2. XOLAIR PFS [Suspect]
     Active Substance: OMALIZUMAB
     Indication: Angioedema
     Dosage: INJECTION IN THE ARM
     Route: 058
     Dates: start: 202311
  3. XOLAIR PFS [Suspect]
     Active Substance: OMALIZUMAB
     Indication: Food allergy
     Route: 058
  4. XOLAIR PFS [Suspect]
     Active Substance: OMALIZUMAB
     Indication: Anaphylactic reaction

REACTIONS (1)
  - Anaphylactic reaction [Recovered/Resolved]

NARRATIVE: CASE EVENT DATE: 20231211
